FAERS Safety Report 23971233 (Version 3)
Quarter: 2024Q3

REPORT INFORMATION
  Report Type: Other
  Country: CA (occurrence: CA)
  Receive Date: 20240613
  Receipt Date: 20240705
  Transmission Date: 20241017
  Serious: Yes (Death, Other)
  Sender: APOTEX
  Company Number: CA-APOTEX-2024AP007095

PATIENT
  Sex: Female

DRUGS (1)
  1. IMATINIB [Suspect]
     Active Substance: IMATINIB
     Indication: Chronic myeloid leukaemia
     Dosage: 100 MILLIGRAM, TID
     Route: 048
     Dates: start: 20220622

REACTIONS (2)
  - Cardiac failure [Fatal]
  - Malignant neoplasm progression [Fatal]
